FAERS Safety Report 7950576-2 (Version None)
Quarter: 2011Q4

REPORT INFORMATION
  Report Type: 
  Country: None (occurrence: None)
  Receive Date: 20111130
  Receipt Date: 20111124
  Transmission Date: 20120403
  Serious: Yes (Hospitalization)
  Sender: FDA-Public Use
  Company Number: US-ABBOTT-11P-163-0877624-00

PATIENT
  Age: 28 Year
  Sex: Male

DRUGS (6)
  1. VALPROATE SODIUM [Suspect]
     Indication: CONVULSION
     Route: 048
  2. PROCHLORPERAZINE [Suspect]
     Indication: NAUSEA
  3. PHENYTOIN [Concomitant]
     Indication: PRODUCT USED FOR UNKNOWN INDICATION
  4. OLANZAPINE [Suspect]
     Indication: SCHIZOPHRENIA, PARANOID TYPE
  5. SODIUM CHLORIDE [Concomitant]
     Indication: PRODUCT USED FOR UNKNOWN INDICATION
  6. PROCHLORPERAZINE [Suspect]
     Indication: VOMITING

REACTIONS (16)
  - TACHYCARDIA [None]
  - AGGRESSION [None]
  - HYPOTENSION [None]
  - BLOOD CREATINE PHOSPHOKINASE INCREASED [None]
  - CONVULSION [None]
  - HYPERTONIA [None]
  - AMMONIA INCREASED [None]
  - VOMITING [None]
  - NEUROLEPTIC MALIGNANT SYNDROME [None]
  - LEUKOCYTOSIS [None]
  - ABNORMAL BEHAVIOUR [None]
  - UNRESPONSIVE TO STIMULI [None]
  - AGITATION [None]
  - HYPERHIDROSIS [None]
  - NAUSEA [None]
  - HYPERTHERMIA [None]
